FAERS Safety Report 11427567 (Version 1)
Quarter: 2015Q3

REPORT INFORMATION
  Report Type: Spontaneous
  Country: BR (occurrence: None)
  Receive Date: 20150826
  Receipt Date: 20150826
  Transmission Date: 20151125
  Serious: Yes (Other)
  Sender: FDA-Public Use
  Company Number: US-2015INT000515

PATIENT
  Age: 30 Year
  Sex: Male

DRUGS (5)
  1. RADIOTHERAPY [Suspect]
     Active Substance: RADIATION THERAPY
     Indication: LARYNGEAL SQUAMOUS CELL CARCINOMA
     Dosage: 2GY/DAY
  2. CISPLATIN (CISPLATIN) UNKNOWN [Suspect]
     Active Substance: CISPLATIN
     Indication: LARYNGEAL SQUAMOUS CELL CARCINOMA
     Dosage: 100 MG/M2, (DAYS 1, 22 AND 43), INTRAVENOUS
     Route: 042
  3. DEXAMETHASONE. [Concomitant]
     Active Substance: DEXAMETHASONE
  4. ONDANSETRON [Concomitant]
     Active Substance: ONDANSETRON
  5. METOCLOPRAMIDE. [Concomitant]
     Active Substance: METOCLOPRAMIDE

REACTIONS (3)
  - Pyrexia [None]
  - Pancytopenia [None]
  - Alopecia [None]
